FAERS Safety Report 8796929 (Version 1)
Quarter: 2012Q4

REPORT INFORMATION
  Report Type: 
  Country: US (occurrence: US)
  Receive Date: 20120919
  Receipt Date: 20120919
  Transmission Date: 20130627
  Serious: No
  Sender: FDA-Public Use
  Company Number: US-VERTEX PHARMACEUTICAL INC.-AE-2012-007461

PATIENT
  Age: 63 Year
  Sex: Female

DRUGS (6)
  1. VX-950 [Suspect]
     Indication: HEPATITIS C
     Dosage: UNK
     Route: 048
     Dates: start: 20120123, end: 20120415
  2. PEGASYS [Concomitant]
     Indication: HEPATITIS C
     Dosage: UNK
     Dates: start: 20120123
  3. RIBASPHERE [Concomitant]
     Indication: HEPATITIS C
     Dosage: UNK
     Dates: start: 20120123, end: 20120407
  4. RIBASPHERE [Concomitant]
     Dosage: UNK
     Dates: start: 20120408, end: 20120414
  5. RIBASPHERE [Concomitant]
     Dosage: UNK
     Dates: start: 20120415
  6. RIBASPHERE [Concomitant]
     Dosage: 1000 mg, qd
     Dates: start: 201208

REACTIONS (6)
  - Depression [Not Recovered/Not Resolved]
  - White blood cell count decreased [Not Recovered/Not Resolved]
  - Asthenia [Not Recovered/Not Resolved]
  - Fatigue [Not Recovered/Not Resolved]
  - Anaemia [Not Recovered/Not Resolved]
  - Platelet count decreased [Not Recovered/Not Resolved]
